FAERS Safety Report 19171053 (Version 3)
Quarter: 2021Q2

REPORT INFORMATION
  Report Type: Spontaneous
  Country: CL (occurrence: CL)
  Receive Date: 20210422
  Receipt Date: 20210603
  Transmission Date: 20210717
  Serious: Yes (Other)
  Sender: FDA-Public Use
  Company Number: CL-SA-2021SA128317

PATIENT
  Age: 26 Year
  Sex: Female

DRUGS (1)
  1. ZOLPIDEM TARTRATE. [Suspect]
     Active Substance: ZOLPIDEM TARTRATE
     Indication: BIPOLAR DISORDER
     Dosage: 5 TO 10 ZOLPIDEM 10 MG TABLETS NIGHTLY

REACTIONS (4)
  - Drug withdrawal convulsions [Recovered/Resolved]
  - Postictal state [Recovered/Resolved]
  - Confusional state [Unknown]
  - Generalised tonic-clonic seizure [Recovered/Resolved]
